FAERS Safety Report 7770117-2 (Version None)
Quarter: 2011Q3

REPORT INFORMATION
  Report Type: 
  Country: None (occurrence: None)
  Receive Date: 20110922
  Receipt Date: 20110726
  Transmission Date: 20111222
  Serious: No
  Sender: FDA-Public Use
  Company Number: US-ASTRAZENECA-2011SE14131

PATIENT
  Age: 44 Year
  Sex: Female

DRUGS (12)
  1. SEROQUEL [Suspect]
     Indication: ANXIETY
     Route: 048
     Dates: start: 20100101, end: 20110301
  2. SEROQUEL [Suspect]
     Route: 048
     Dates: start: 20110301
  3. SEROQUEL [Suspect]
     Route: 048
  4. ASPIRIN [Concomitant]
  5. SEROQUEL [Suspect]
     Route: 048
  6. SEROQUEL [Suspect]
     Route: 048
  7. NEXIUM [Concomitant]
  8. TRIAMTERENE [Concomitant]
  9. SEROQUEL [Suspect]
     Indication: SLEEP DISORDER
     Route: 048
     Dates: start: 20100101, end: 20110301
  10. SYMBICORT [Concomitant]
  11. SEROQUEL [Suspect]
     Route: 048
  12. SEROQUEL [Suspect]
     Route: 048
     Dates: start: 20110301

REACTIONS (7)
  - OFF LABEL USE [None]
  - PALPITATIONS [None]
  - INSOMNIA [None]
  - LIVER FUNCTION TEST ABNORMAL [None]
  - PANIC ATTACK [None]
  - POOR QUALITY SLEEP [None]
  - SLEEP DISORDER DUE TO A GENERAL MEDICAL CONDITION [None]
